FAERS Safety Report 7106279-X (Version None)
Quarter: 2010Q4

REPORT INFORMATION
  Report Type: 
  Country: None (occurrence: None)
  Receive Date: 20101116
  Receipt Date: 20101004
  Transmission Date: 20110411
  Serious: Yes (Other)
  Sender: FDA-Public Use
  Company Number: PHHY2010US66153

PATIENT

DRUGS (1)
  1. RECLAST [Suspect]
     Dosage: 5 MG
     Route: 042
     Dates: start: 20091101

REACTIONS (8)
  - ARTHRALGIA [None]
  - BONE PAIN [None]
  - DENTAL CARIES [None]
  - FEELING ABNORMAL [None]
  - HEADACHE [None]
  - PAIN [None]
  - PAIN IN EXTREMITY [None]
  - TOOTH REPAIR [None]
